FAERS Safety Report 24805908 (Version 1)
Quarter: 2025Q1

REPORT INFORMATION
  Report Type: Spontaneous
  Country: FR (occurrence: FR)
  Receive Date: 20250103
  Receipt Date: 20250103
  Transmission Date: 20250409
  Serious: Yes (Hospitalization)
  Sender: PFIZER
  Company Number: None

PATIENT
  Age: 78 Year
  Sex: Female
  Weight: 60 kg

DRUGS (11)
  1. CARBOPLATIN [Suspect]
     Active Substance: CARBOPLATIN
     Indication: Clear cell endometrial carcinoma
     Route: 042
     Dates: start: 20230921, end: 20230921
  2. CARBOPLATIN [Suspect]
     Active Substance: CARBOPLATIN
  3. CARBOPLATIN [Suspect]
     Active Substance: CARBOPLATIN
     Dates: start: 20231122, end: 20231122
  4. CARBOPLATIN [Suspect]
     Active Substance: CARBOPLATIN
  5. CARBOPLATIN [Suspect]
     Active Substance: CARBOPLATIN
     Dates: start: 20240912
  6. CARBOPLATIN [Suspect]
     Active Substance: CARBOPLATIN
     Dates: start: 20241003, end: 20241003
  7. CARBOPLATIN [Suspect]
     Active Substance: CARBOPLATIN
     Dates: start: 20241024, end: 20241024
  8. CARBOPLATIN [Suspect]
     Active Substance: CARBOPLATIN
     Dates: start: 20241114, end: 20241114
  9. JEMPERLI [Suspect]
     Active Substance: DOSTARLIMAB-GXLY
     Indication: Clear cell endometrial carcinoma
     Route: 042
     Dates: start: 20240912, end: 20240912
  10. JEMPERLI [Suspect]
     Active Substance: DOSTARLIMAB-GXLY
     Route: 042
     Dates: start: 20241003, end: 20241003
  11. JEMPERLI [Suspect]
     Active Substance: DOSTARLIMAB-GXLY
     Route: 042
     Dates: start: 20241024, end: 20241024

REACTIONS (2)
  - Otitis media acute [Recovering/Resolving]
  - Off label use [Unknown]

NARRATIVE: CASE EVENT DATE: 20230921
